FAERS Safety Report 11116449 (Version 1)
Quarter: 2015Q2

REPORT INFORMATION
  Report Type: Spontaneous
  Country: US (occurrence: None)
  Receive Date: 20150514
  Receipt Date: 20150514
  Transmission Date: 20150821
  Serious: Yes (Disabling)
  Sender: FDA-Public Use
  Company Number: None

PATIENT
  Age: 43 Year
  Sex: Female
  Weight: 68.95 kg

DRUGS (3)
  1. LEVAQUIN [Suspect]
     Active Substance: LEVOFLOXACIN
     Indication: OTITIS MEDIA
     Route: 048
     Dates: start: 20141116, end: 20141123
  2. SEROQUEL [Concomitant]
     Active Substance: QUETIAPINE FUMARATE
  3. ALEVE [Concomitant]
     Active Substance: NAPROXEN SODIUM

REACTIONS (13)
  - Weight decreased [None]
  - Erythema [None]
  - Eye disorder [None]
  - Pain [None]
  - Fear [None]
  - Hallucination [None]
  - Restlessness [None]
  - Pain in extremity [None]
  - Tendon rupture [None]
  - Feeding disorder [None]
  - Insomnia [None]
  - Tendon disorder [None]
  - Agitation [None]

NARRATIVE: CASE EVENT DATE: 20141118
